FAERS Safety Report 25153040 (Version 1)
Quarter: 2025Q2

REPORT INFORMATION
  Report Type: Spontaneous
  Country: RU (occurrence: RU)
  Receive Date: 20250403
  Receipt Date: 20250403
  Transmission Date: 20250717
  Serious: Yes (Death, Hospitalization)
  Sender: Unknown Manufacturer
  Company Number: RU-MIRUM PHARMACEUTICALS, INC.-RU-MIR-25-00181

PATIENT

DRUGS (2)
  1. MARALIXIBAT [Suspect]
     Active Substance: MARALIXIBAT
     Indication: Alagille syndrome
     Dosage: 0.3 MILLILITER, QD
     Route: 048
     Dates: start: 20240709, end: 20250319
  2. MARALIXIBAT [Suspect]
     Active Substance: MARALIXIBAT
     Indication: Cholestatic pruritus

REACTIONS (2)
  - Multiple organ dysfunction syndrome [Fatal]
  - Coma [Fatal]

NARRATIVE: CASE EVENT DATE: 20250320
